FAERS Safety Report 21085855 (Version 1)
Quarter: 2022Q3

REPORT INFORMATION
  Report Type: Spontaneous
  Country: US (occurrence: US)
  Receive Date: 20220715
  Receipt Date: 20220715
  Transmission Date: 20221026
  Serious: No
  Sender: FDA-Public Use
  Company Number: US-NOVARTISTESTPH-NVSC2022US160072

PATIENT
  Sex: Female

DRUGS (1)
  1. XIIDRA [Suspect]
     Active Substance: LIFITEGRAST
     Indication: Dry eye
     Dosage: 5 %, BID
     Route: 065
     Dates: start: 20220712, end: 20220712

REACTIONS (5)
  - Ocular hyperaemia [Not Recovered/Not Resolved]
  - Eye pain [Recovered/Resolved]
  - Eye irritation [Unknown]
  - Lacrimation increased [Unknown]
  - Headache [Unknown]
